FAERS Safety Report 8445498-7 (Version None)
Quarter: 2012Q2

REPORT INFORMATION
  Report Type: 
  Country: None (occurrence: None)
  Receive Date: 20120323
  Receipt Date: 20111025
  Transmission Date: 20120825
  Serious: Yes (Other)
  Sender: FDA-Public Use
  Company Number: 163-21880-11103434

PATIENT
  Age: 63 Year
  Sex: Male

DRUGS (13)
  1. FUROSEMIDE [Concomitant]
  2. WARFARIN SODIUM [Concomitant]
  3. CARVEDILOL [Concomitant]
  4. SIMVASTATIN [Concomitant]
  5. SPIRONOLACTONE [Concomitant]
  6. NOVOLOG [Concomitant]
  7. M.V.I. [Concomitant]
  8. ALLOPURINOL [Concomitant]
  9. REVLIMID [Suspect]
     Indication: MULTIPLE MYELOMA
     Dosage: 25 UG, 1 IN 1 D, PO; 10 MG, 1 IN 1 D, PO; 5 MG, 1 IN 1 D, PO
     Route: 048
     Dates: start: 20100301
  10. REVLIMID [Suspect]
     Indication: MULTIPLE MYELOMA
     Dosage: 25 UG, 1 IN 1 D, PO; 10 MG, 1 IN 1 D, PO; 5 MG, 1 IN 1 D, PO
     Route: 048
     Dates: start: 20101101
  11. REVLIMID [Suspect]
     Indication: MULTIPLE MYELOMA
     Dosage: 25 UG, 1 IN 1 D, PO; 10 MG, 1 IN 1 D, PO; 5 MG, 1 IN 1 D, PO
     Route: 048
     Dates: start: 20110401
  12. ZOLPIDEM [Concomitant]
  13. LISINOPRIL [Concomitant]

REACTIONS (1)
  - BONE MARROW FAILURE [None]
